FAERS Safety Report 7907351-4 (Version None)
Quarter: 2011Q4

REPORT INFORMATION
  Report Type: 
  Country: None (occurrence: None)
  Receive Date: 20111109
  Receipt Date: 20111109
  Transmission Date: 20120403
  Serious: Yes (Hospitalization)
  Sender: FDA-Public Use
  Company Number: None

PATIENT
  Sex: Male
  Weight: 70 kg

DRUGS (3)
  1. BEVACIZUMAB (RHUMAB VEGF) [Suspect]
     Dosage: 1050 MG
     Dates: end: 20110811
  2. TAXOL [Suspect]
     Dosage: 370 MG
     Dates: end: 20110811
  3. CARBOPLATIN [Suspect]
     Dosage: 750 MG
     Dates: end: 20110811

REACTIONS (5)
  - URINARY RETENTION [None]
  - OROPHARYNGEAL PAIN [None]
  - HYPOXIA [None]
  - DYSPHAGIA [None]
  - ATRIAL FIBRILLATION [None]
